FAERS Safety Report 18108282 (Version 1)
Quarter: 2020Q3

REPORT INFORMATION
  Report Type: Spontaneous
  Country: IT (occurrence: IT)
  Receive Date: 20200804
  Receipt Date: 20200804
  Transmission Date: 20201103
  Serious: Yes (Hospitalization)
  Sender: FDA-Public Use
  Company Number: IT-MYLANLABS-2020M1069269

PATIENT
  Age: 59 Year
  Sex: Male
  Weight: 78 kg

DRUGS (8)
  1. ENOXAPARIN [Suspect]
     Active Substance: ENOXAPARIN
     Indication: THROMBOSIS PROPHYLAXIS
     Dosage: 8000 INTERNATIONAL UNIT, BID
     Route: 058
     Dates: start: 2020
  2. AZITHROMYCIN ANHYDROUS. [Suspect]
     Active Substance: AZITHROMYCIN ANHYDROUS
     Indication: COVID-19
     Dosage: 250 MILLIGRAM, QD
     Route: 065
     Dates: start: 2020
  3. TOCILIZUMAB. [Suspect]
     Active Substance: TOCILIZUMAB
     Indication: COVID-19
     Dosage: 600 MILLIGRAM
     Route: 042
     Dates: start: 2020
  4. MEROPENEM. [Concomitant]
     Active Substance: MEROPENEM
     Indication: EVIDENCE BASED TREATMENT
     Dosage: THRICE DAILY
     Route: 042
     Dates: start: 2020
  5. NOREPINEPHRINE. [Concomitant]
     Active Substance: NOREPINEPHRINE
     Indication: HYPOTENSION
     Dosage: 0.3 MICROGRAM/KILOGRAM, QMINUTE
     Route: 065
     Dates: start: 2020
  6. ROCURONIUM [Concomitant]
     Active Substance: ROCURONIUM BROMIDE
     Indication: MUSCLE RELAXANT THERAPY
     Dosage: 0.6 MILLIGRAM/KILOGRAM, QH
     Dates: start: 2020
  7. LINEZOLID. [Concomitant]
     Active Substance: LINEZOLID
     Indication: EVIDENCE BASED TREATMENT
     Dosage: 600 MILLIGRAM, BID
     Route: 042
     Dates: start: 2020
  8. HYDROXYCHLOROQUINE [Suspect]
     Active Substance: HYDROXYCHLOROQUINE
     Indication: COVID-19
     Dosage: 200 MILLIGRAM, QD, THREE TIMES DAILY
     Route: 065
     Dates: start: 2020

REACTIONS (2)
  - Off label use [Unknown]
  - Drug ineffective [Unknown]

NARRATIVE: CASE EVENT DATE: 2020
